FAERS Safety Report 5835785-0 (Version None)
Quarter: 2008Q3

REPORT INFORMATION
  Report Type: 
  Country: None (occurrence: None)
  Receive Date: 20080724
  Receipt Date: 20080417
  Transmission Date: 20090109
  Serious: No
  Sender: FDA-Public Use
  Company Number: 2008-BP-06075BP

PATIENT
  Age: 69 Year
  Sex: Male

DRUGS (1)
  1. APTIVUS [Suspect]
     Dosage: (SEE TEXT,TPV/R 250/100 MG)

REACTIONS (2)
  - INJECTION SITE REACTION [None]
  - WEIGHT DECREASED [None]
